FAERS Safety Report 7319049-4 (Version None)
Quarter: 2011Q1

REPORT INFORMATION
  Report Type: 
  Country: None (occurrence: None)
  Receive Date: 20110216
  Receipt Date: 20110131
  Transmission Date: 20110831
  Serious: Yes (Hospitalization)
  Sender: FDA-Public Use
  Company Number: AMAG201100007

PATIENT
  Age: 76 Year
  Sex: Male

DRUGS (1)
  1. FERAHEME [Suspect]
     Indication: IRON DEFICIENCY ANAEMIA
     Dosage: 510 MG, SINGLE, INTRAVENOUS
     Route: 042
     Dates: start: 20110118, end: 20110118

REACTIONS (8)
  - HEADACHE [None]
  - DISORIENTATION [None]
  - ABASIA [None]
  - INSOMNIA [None]
  - DIZZINESS [None]
  - BRADYCARDIA [None]
  - EJECTION FRACTION DECREASED [None]
  - BACK PAIN [None]
